FAERS Safety Report 22535174 (Version 1)
Quarter: 2023Q2

REPORT INFORMATION
  Report Type: Spontaneous
  Country: CN (occurrence: CN)
  Receive Date: 20230608
  Receipt Date: 20230608
  Transmission Date: 20230722
  Serious: Yes (Hospitalization, Other)
  Sender: FDA-Public Use
  Company Number: CN-PFIZER INC-PV202300099485

PATIENT

DRUGS (1)
  1. CIBINQO [Suspect]
     Active Substance: ABROCITINIB
     Indication: Dermatitis atopic
     Dosage: 100 QD
     Route: 048

REACTIONS (21)
  - Gastrointestinal haemorrhage [Unknown]
  - Cerebral haemorrhage [Unknown]
  - Hypoxic-ischaemic encephalopathy [Unknown]
  - Cardiac failure [Unknown]
  - Myocardial infarction [Unknown]
  - Arrhythmia [Unknown]
  - Hypertensive crisis [Unknown]
  - Eczema herpeticum [Unknown]
  - Shock haemorrhagic [Unknown]
  - Upper gastrointestinal haemorrhage [Unknown]
  - Cerebral infarction [Unknown]
  - Brain herniation [Unknown]
  - Septic shock [Unknown]
  - Anaphylactic shock [Unknown]
  - Cardiogenic shock [Unknown]
  - Disseminated intravascular coagulation [Unknown]
  - Multiple organ dysfunction syndrome [Unknown]
  - Diabetic hyperosmolar coma [Unknown]
  - Hypoglycaemic coma [Unknown]
  - Diabetic ketosis [Unknown]
  - Acidosis [Unknown]
